FAERS Safety Report 10302196 (Version 1)
Quarter: 2014Q3

REPORT INFORMATION
  Report Type: Spontaneous
  Country: US (occurrence: US)
  Receive Date: 20140714
  Receipt Date: 20140714
  Transmission Date: 20150326
  Serious: No
  Sender: FDA-Public Use
  Company Number: US-GILEAD-2013-0081686

PATIENT
  Sex: Female

DRUGS (2)
  1. OGEN [Concomitant]
     Active Substance: ESTROPIPATE
  2. LETAIRIS [Suspect]
     Active Substance: AMBRISENTAN
     Indication: PRODUCT USED FOR UNKNOWN INDICATION
     Dosage: 5 MG, QD
     Route: 048
     Dates: start: 20121126

REACTIONS (5)
  - Pain in extremity [Unknown]
  - Weight increased [Unknown]
  - Dyspnoea [Unknown]
  - Pain [Unknown]
  - Hot flush [Unknown]

NARRATIVE: CASE EVENT DATE: 2013
